FAERS Safety Report 11187554 (Version 4)
Quarter: 2020Q1

REPORT INFORMATION
  Report Type: Spontaneous
  Country: US (occurrence: US)
  Receive Date: 20150615
  Receipt Date: 20200324
  Transmission Date: 20200409
  Serious: Yes (Hospitalization)
  Sender: FDA-Public Use
  Company Number: US-JNJFOC-20150605294

PATIENT
  Age: 76 Year
  Sex: Female

DRUGS (12)
  1. WARFARIN [Concomitant]
     Active Substance: WARFARIN
     Route: 048
     Dates: start: 201501
  2. CLONAZEPAM. [Concomitant]
     Active Substance: CLONAZEPAM
     Indication: TREMOR
  3. FUROSEMIDE. [Concomitant]
     Active Substance: FUROSEMIDE
     Indication: PERIPHERAL SWELLING
  4. ARICEPT [Concomitant]
     Active Substance: DONEPEZIL HYDROCHLORIDE
     Indication: SWELLING
  5. ENOXAPARIN [Concomitant]
     Active Substance: ENOXAPARIN
     Indication: PULMONARY EMBOLISM
     Route: 058
     Dates: start: 201501
  6. CLONAZEPAM. [Concomitant]
     Active Substance: CLONAZEPAM
     Indication: PULMONARY EMBOLISM
     Route: 048
     Dates: start: 201501
  7. FUROSEMIDE. [Concomitant]
     Active Substance: FUROSEMIDE
     Indication: PULMONARY EMBOLISM
     Route: 048
     Dates: start: 201501
  8. ASPIR-81 [Suspect]
     Active Substance: ASPIRIN
     Indication: PRODUCT USED FOR UNKNOWN INDICATION
     Route: 048
     Dates: start: 20140228, end: 20140905
  9. WARFARIN [Concomitant]
     Active Substance: WARFARIN
     Indication: PULMONARY EMBOLISM
     Route: 048
     Dates: start: 201501
  10. XARELTO [Suspect]
     Active Substance: RIVAROXABAN
     Indication: PULMONARY EMBOLISM
     Dosage: DOSE: 15-20 MG
     Route: 048
     Dates: start: 20131206
  11. ARICEPT [Concomitant]
     Active Substance: DONEPEZIL HYDROCHLORIDE
     Indication: PULMONARY EMBOLISM
     Route: 048
     Dates: start: 201501
  12. ENOXAPARIN [Concomitant]
     Active Substance: ENOXAPARIN
     Indication: INTERNATIONAL NORMALISED RATIO

REACTIONS (2)
  - Upper gastrointestinal haemorrhage [Recovering/Resolving]
  - Pulmonary embolism [Recovered/Resolved]

NARRATIVE: CASE EVENT DATE: 20140905
